FAERS Safety Report 9139236 (Version 2)
Quarter: 2013Q1

REPORT INFORMATION
  Report Type: Spontaneous
  Country: NL (occurrence: NL)
  Receive Date: 20130305
  Receipt Date: 20130307
  Transmission Date: 20140127
  Serious: Yes (Other)
  Sender: FDA-Public Use
  Company Number: PHHY2013NL021019

PATIENT
  Sex: Female

DRUGS (2)
  1. ACLASTA [Suspect]
     Indication: OSTEOPOROSIS
     Dosage: 4 MG (4MG/100ML), UNK
     Route: 042
     Dates: start: 20110329
  2. ACLASTA [Suspect]
     Dosage: 4 MG (4MG/100ML), UNK
     Route: 042
     Dates: start: 20120404

REACTIONS (3)
  - Spinal compression fracture [Unknown]
  - Incorrect dose administered [Unknown]
  - Drug ineffective [Unknown]
